FAERS Safety Report 5713457-0 (Version None)
Quarter: 2008Q2

REPORT INFORMATION
  Report Type: 
  Country: None (occurrence: None)
  Receive Date: 20080422
  Receipt Date: 20080416
  Transmission Date: 20081010
  Serious: Yes (Hospitalization)
  Sender: FDA-Public Use
  Company Number: US-BOEHRINGER INGELHEIM GMBH, GERMANY-2008-BP-06136BP

PATIENT
  Sex: Female

DRUGS (1)
  1. COMBIVENT [Suspect]

REACTIONS (8)
  - CARDIAC VALVE DISEASE [None]
  - FALL [None]
  - FIBROMYALGIA [None]
  - GALLBLADDER DISORDER [None]
  - GENERALISED OEDEMA [None]
  - HYPERTHYROIDISM [None]
  - INFECTION [None]
  - OEDEMA PERIPHERAL [None]
